FAERS Safety Report 12706833 (Version 3)
Quarter: 2016Q3

REPORT INFORMATION
  Report Type: Spontaneous
  Country: BR (occurrence: BR)
  Receive Date: 20160901
  Receipt Date: 20160922
  Transmission Date: 20161109
  Serious: Yes (Death, Other)
  Sender: FDA-Public Use
  Company Number: BR-GLAXOSMITHKLINE-BR2016GSK124932

PATIENT
  Age: 88 Year
  Sex: Male
  Weight: 68 kg

DRUGS (2)
  1. COMBODART [Suspect]
     Active Substance: DUTASTERIDE\TAMSULOSIN
     Indication: BENIGN PROSTATIC HYPERPLASIA
     Dosage: 1 UNK, QD
     Route: 048
     Dates: start: 20150220, end: 20160813
  2. BROMAZEPAN [Concomitant]
     Indication: DEPRESSION
     Dosage: 1 UNK, QD
     Route: 048

REACTIONS (14)
  - Prostatomegaly [Unknown]
  - Haemorrhage [Recovered/Resolved]
  - Blood urine present [Recovered/Resolved]
  - Malaise [Unknown]
  - Prostatomegaly [Recovered/Resolved]
  - Urethral disorder [Unknown]
  - Pain [Recovered/Resolved]
  - Pallor [Recovered/Resolved]
  - Urethral pain [Unknown]
  - Urethral obstruction [Unknown]
  - Product availability issue [Unknown]
  - Death [Fatal]
  - Urinary tract infection [Unknown]
  - Hypertension [Recovered/Resolved]

NARRATIVE: CASE EVENT DATE: 20160813
